FAERS Safety Report 4676706-6 (Version None)
Quarter: 2005Q2

REPORT INFORMATION
  Report Type: 
  Country: None (occurrence: None)
  Receive Date: 20050527
  Receipt Date: 20050516
  Transmission Date: 20051028
  Serious: Yes (Other)
  Sender: FDA-Public Use
  Company Number: US-JNJFOC-20050505823

PATIENT
  Sex: Female
  Weight: 13.61 kg

DRUGS (2)
  1. CONCENTRATED MOTRIN INFANTS' [Suspect]
     Route: 049
  2. CONCENTRATED MOTRIN INFANTS' [Suspect]
     Route: 049

REACTIONS (8)
  - CHILLS [None]
  - DRUG INEFFECTIVE [None]
  - DYSPNOEA [None]
  - EXCITABILITY [None]
  - LOGORRHOEA [None]
  - NERVOUSNESS [None]
  - RESPIRATORY RATE INCREASED [None]
  - TREMOR [None]
